FAERS Safety Report 8788708 (Version 3)
Quarter: 2012Q4

REPORT INFORMATION
  Report Type: 
  Country: US (occurrence: US)
  Receive Date: 20120916
  Receipt Date: 20121113
  Transmission Date: 20130627
  Serious: Yes (Other)
  Sender: FDA-Public Use
  Company Number: PHEH2012US017717

PATIENT
  Sex: Female

DRUGS (17)
  1. LETROZOLE [Suspect]
     Dosage: 2.5 mg, daily
     Route: 048
  2. ARMOUR THYROID [Concomitant]
  3. LEVOTHROID [Concomitant]
  4. PROLIA [Concomitant]
  5. ASPIRIN [Concomitant]
     Dosage: 81 mg, UNK
  6. GREEN TEA EXTRACT [Concomitant]
  7. CURCERA [Concomitant]
  8. VITAMIN C [Concomitant]
  9. FLAXSEED OIL [Concomitant]
  10. FISH OIL [Concomitant]
  11. CALCIUM [Concomitant]
  12. MULTIVITAMINS [Concomitant]
  13. VITAMIN D3 [Concomitant]
  14. RESVERATROL [Concomitant]
  15. ASTAXANTHIN [Concomitant]
  16. MAGNESIUM [Concomitant]
  17. B COMPLEX [Concomitant]

REACTIONS (1)
  - Blood oestrogen increased [Unknown]
